FAERS Safety Report 15306148 (Version 1)
Quarter: 2018Q3

REPORT INFORMATION
  Report Type: Spontaneous
  Country: US (occurrence: US)
  Receive Date: 20180810
  Receipt Date: 20180810
  Transmission Date: 20181010
  Serious: No
  Sender: FDA-Public Use
  Company Number: None

PATIENT
  Sex: Female

DRUGS (1)
  1. TALTZ [Suspect]
     Active Substance: IXEKIZUMAB
     Indication: PSORIASIS
     Route: 058
     Dates: start: 201807

REACTIONS (6)
  - Productive cough [None]
  - Upper respiratory tract infection [None]
  - Injection site reaction [None]
  - Skin fissures [None]
  - Vomiting [None]
  - Skin ulcer [None]
